FAERS Safety Report 8154659 (Version 3)
Quarter: 2013Q4

REPORT INFORMATION
  Report Type: Spontaneous
  Country: US (occurrence: US)
  Receive Date: 20110923
  Receipt Date: 20131202
  Transmission Date: 20140711
  Serious: Yes (Death, Hospitalization)
  Sender: FDA-Public Use
  Company Number: US-GLAXOSMITHKLINE-A0915568A

PATIENT
  Age: 71 Year
  Sex: Female
  Weight: 75.9 kg

DRUGS (2)
  1. AVANDARYL [Suspect]
     Indication: DIABETES MELLITUS
     Route: 048
  2. AVANDIA [Suspect]
     Indication: DIABETES MELLITUS
     Route: 048

REACTIONS (15)
  - Sepsis [Fatal]
  - Pneumonia [Fatal]
  - Myocardial infarction [Unknown]
  - Atrial fibrillation [Unknown]
  - Arrhythmia [Unknown]
  - Cardiomegaly [Unknown]
  - Cardiomegaly [Unknown]
  - Anaemia [Unknown]
  - Hyperlipidaemia [Unknown]
  - Hypertension [Unknown]
  - Coronary artery disease [Unknown]
  - Dyspnoea [Unknown]
  - Fracture [Unknown]
  - Cardiac failure congestive [Unknown]
  - Renal failure acute [Unknown]
